FAERS Safety Report 5622583-6 (Version None)
Quarter: 2008Q1

REPORT INFORMATION
  Report Type: 
  Country: None (occurrence: None)
  Receive Date: 20080114
  Receipt Date: 20071203
  Transmission Date: 20080703
  Serious: Yes (Other)
  Sender: FDA-Public Use
  Company Number: A03200601929

PATIENT
  Age: 71 Year
  Sex: Female
  Weight: 79.8331 kg

DRUGS (10)
  1. PLAVIX [Suspect]
     Dosage: 75 MG QD - ORAL
     Route: 048
     Dates: start: 20060101
  2. ASPIRIN [Suspect]
     Dosage: - ORAL
     Route: 048
     Dates: start: 20060101, end: 20070101
  3. ASPIRIN [Suspect]
     Dates: end: 20060301
  4. ALBUTEROL [Concomitant]
  5. SALMETEROL/FLUTICASONE [Concomitant]
  6. ROSUVASTATIN [Concomitant]
  7. PIOGLITAZONE HCL [Concomitant]
  8. GABAPENTIN [Concomitant]
  9. FENOFIBRATE [Concomitant]
  10. ...................... [Concomitant]

REACTIONS (4)
  - BACK PAIN [None]
  - HERPES ZOSTER [None]
  - MYOCARDIAL INFARCTION [None]
  - TINNITUS [None]
